FAERS Safety Report 11246980 (Version 1)
Quarter: 2015Q3

REPORT INFORMATION
  Report Type: Spontaneous
  Country: GB (occurrence: GB)
  Receive Date: 20150708
  Receipt Date: 20150708
  Transmission Date: 20151125
  Serious: No
  Sender: FDA-Public Use
  Company Number: GB-JNJFOC-20150700183

PATIENT
  Sex: Female

DRUGS (1)
  1. DUROGESIC DTRANS [Suspect]
     Active Substance: FENTANYL
     Indication: BREAKTHROUGH PAIN
     Route: 062

REACTIONS (3)
  - Breakthrough pain [Unknown]
  - Wrong technique in product usage process [Unknown]
  - Product quality issue [Unknown]
